FAERS Safety Report 4297498-9 (Version None)
Quarter: 2004Q1

REPORT INFORMATION
  Report Type: 
  Country: None (occurrence: None)
  Receive Date: 20040218
  Receipt Date: 20040206
  Transmission Date: 20041129
  Serious: Yes (Disabling)
  Sender: FDA-Public Use
  Company Number: JP-GLAXOSMITHKLINE-B0323056A

PATIENT
  Age: 24 Year
  Sex: Female

DRUGS (13)
  1. PAXIL [Suspect]
     Indication: PANIC DISORDER
     Dosage: 10MG PER DAY
     Route: 048
     Dates: start: 20031121, end: 20031126
  2. PAXIL [Suspect]
     Dosage: 20MG PER DAY
     Route: 048
     Dates: start: 20031127, end: 20031214
  3. PAXIL [Suspect]
     Dosage: 10MG PER DAY
     Route: 048
     Dates: start: 20031215, end: 20031222
  4. PAXIL [Suspect]
     Dosage: 10MG PER DAY
     Route: 048
     Dates: start: 20040119, end: 20040122
  5. PAXIL [Suspect]
     Dosage: 20MG PER DAY
     Route: 048
     Dates: start: 20040123
  6. DIAZEPAM [Concomitant]
     Route: 065
  7. BENZALIN [Concomitant]
     Route: 048
  8. PRIMPERAN TAB [Concomitant]
     Route: 065
  9. TERNELIN [Concomitant]
     Route: 048
  10. SODIUM VALPROATE [Concomitant]
     Route: 048
  11. MYSLEE [Concomitant]
     Route: 048
  12. LENDORM [Concomitant]
     Route: 048
  13. LEXOTAN [Concomitant]
     Route: 048

REACTIONS (2)
  - DIAPHRAGMALGIA [None]
  - HICCUPS [None]
